FAERS Safety Report 20810007 (Version 2)
Quarter: 2022Q2

REPORT INFORMATION
  Report Type: Spontaneous
  Country: US (occurrence: US)
  Receive Date: 20220510
  Receipt Date: 20220511
  Transmission Date: 20220721
  Serious: Yes (Hospitalization, Other)
  Sender: FDA-Public Use
  Company Number: US-PFIZER INC-202200650899

PATIENT
  Age: 59 Year
  Sex: Male

DRUGS (2)
  1. ENCORAFENIB [Suspect]
     Active Substance: ENCORAFENIB
     Indication: Malignant melanoma stage III
     Dosage: UNK
  2. BINIMETINIB [Suspect]
     Active Substance: BINIMETINIB
     Indication: Malignant melanoma stage III
     Dosage: UNK

REACTIONS (6)
  - Acute kidney injury [Recovered/Resolved]
  - Vision blurred [Recovering/Resolving]
  - Conjunctival hyperaemia [Recovered/Resolved]
  - Keratic precipitates [Recovered/Resolved]
  - Autoimmune nephritis [Recovered/Resolved]
  - Uveitis [Recovering/Resolving]
